FAERS Safety Report 24042015 (Version 1)
Quarter: 2024Q3

REPORT INFORMATION
  Report Type: Spontaneous
  Country: US (occurrence: US)
  Receive Date: 20240702
  Receipt Date: 20240702
  Transmission Date: 20241016
  Serious: Yes (Hospitalization)
  Sender: TG THERAPEUTICS
  Company Number: US-TG THERAPEUTICS INC.-TGT003750

PATIENT

DRUGS (1)
  1. BRIUMVI [Suspect]
     Active Substance: UBLITUXIMAB-XIIY
     Indication: Multiple sclerosis
     Dosage: UNK
     Route: 042
     Dates: start: 20240619, end: 20240619

REACTIONS (4)
  - Meningitis bacterial [Unknown]
  - Haemophilus infection [Unknown]
  - Multiple sclerosis [Unknown]
  - Eye infection [Unknown]

NARRATIVE: CASE EVENT DATE: 20240626
